FAERS Safety Report 6891465-4 (Version None)
Quarter: 2010Q3

REPORT INFORMATION
  Report Type: 
  Country: None (occurrence: None)
  Receive Date: 20100731
  Receipt Date: 20070629
  Transmission Date: 20110219
  Serious: No
  Sender: FDA-Public Use
  Company Number: US-PFIZER INC-2007054437

PATIENT
  Sex: Female
  Weight: 88.636 kg

DRUGS (1)
  1. NORVASC [Suspect]
     Indication: BLOOD PRESSURE
     Dates: start: 20070628

REACTIONS (3)
  - ABDOMINAL PAIN UPPER [None]
  - ARTHRALGIA [None]
  - INTENTIONAL DRUG MISUSE [None]
